FAERS Safety Report 9840354 (Version 1)
Quarter: 2014Q1

REPORT INFORMATION
  Report Type: Report from Study
  Country: US (occurrence: US)
  Receive Date: 20140124
  Receipt Date: 20140124
  Transmission Date: 20141002
  Serious: Yes (Death)
  Sender: FDA-Public Use
  Company Number: US-ROCHE-1334174

PATIENT
  Age: 39 Year
  Sex: Female
  Weight: 103.51 kg

DRUGS (12)
  1. AVASTIN [Suspect]
     Indication: CERVIX CARCINOMA
     Route: 042
     Dates: start: 20110906
  2. AVASTIN [Suspect]
     Route: 042
     Dates: start: 20110926
  3. AVASTIN [Suspect]
     Route: 042
     Dates: start: 20111017
  4. AVASTIN [Suspect]
     Route: 042
     Dates: start: 20111107
  5. LYRICA [Concomitant]
     Route: 065
  6. DECADRON [Concomitant]
     Route: 042
  7. VITAMIN B12 [Concomitant]
  8. SANCUSO [Concomitant]
  9. MEGACE [Concomitant]
  10. PREDNISONE [Concomitant]
  11. HYDROCORTISONE [Concomitant]
  12. ALIMTA [Concomitant]
     Route: 065

REACTIONS (20)
  - Death [Fatal]
  - Fatigue [Unknown]
  - Fatigue [Unknown]
  - Constipation [Unknown]
  - Decreased appetite [Unknown]
  - Abdominal pain lower [Unknown]
  - Paraesthesia [Unknown]
  - Hypoaesthesia [Unknown]
  - Weight decreased [Unknown]
  - Anaemia [Unknown]
  - Neuropathy peripheral [Unknown]
  - Nausea [Unknown]
  - Vomiting [Unknown]
  - Pain in extremity [Unknown]
  - Cough [Unknown]
  - Dyspnoea exertional [Unknown]
  - Rash [Unknown]
  - Hypersomnia [Unknown]
  - Pallor [Unknown]
  - Rhinorrhoea [Unknown]
